FAERS Safety Report 12316435 (Version 2)
Quarter: 2020Q2

REPORT INFORMATION
  Report Type: Spontaneous
  Country: US (occurrence: US)
  Receive Date: 20160429
  Receipt Date: 20200527
  Transmission Date: 20200713
  Serious: Yes (Hospitalization, Other)
  Sender: FDA-Public Use
  Company Number: US-EMD SERONO-232850K07USA

PATIENT
  Age: 53 Year
  Sex: Female
  Weight: 95 kg

DRUGS (15)
  1. REBIF [Suspect]
     Active Substance: INTERFERON BETA-1A
     Route: 058
     Dates: start: 200312
  2. VITAMIN-D [Concomitant]
     Active Substance: VITAMIN D NOS
     Indication: MULTIPLE SCLEROSIS
  3. REBIF [Suspect]
     Active Substance: INTERFERON BETA-1A
     Indication: MULTIPLE SCLEROSIS
     Route: 058
     Dates: start: 20030718, end: 20050601
  4. REBIF [Suspect]
     Active Substance: INTERFERON BETA-1A
     Route: 058
     Dates: start: 20060605, end: 200712
  5. ADVIL [Concomitant]
     Active Substance: IBUPROFEN
     Indication: PREMEDICATION
  6. REBIF [Suspect]
     Active Substance: INTERFERON BETA-1A
     Route: 058
     Dates: start: 200801, end: 200803
  7. REBIF [Suspect]
     Active Substance: INTERFERON BETA-1A
     Route: 058
     Dates: start: 20080401, end: 20100708
  8. CYTOMEL [Concomitant]
     Active Substance: LIOTHYRONINE SODIUM
     Indication: ASTHENIA
  9. FOLIC ACID. [Concomitant]
     Active Substance: FOLIC ACID
     Indication: MULTIPLE SCLEROSIS
  10. ADVIL [Concomitant]
     Active Substance: IBUPROFEN
     Indication: ARTHRITIS
  11. REBIF [Suspect]
     Active Substance: INTERFERON BETA-1A
     Route: 058
     Dates: start: 20120504, end: 20131225
  12. REBIF [Suspect]
     Active Substance: INTERFERON BETA-1A
     Route: 058
     Dates: start: 20140624, end: 20190901
  13. CYTOMEL [Concomitant]
     Active Substance: LIOTHYRONINE SODIUM
     Indication: THYROID DISORDER
  14. ADVIL [Concomitant]
     Active Substance: IBUPROFEN
     Indication: TEMPOROMANDIBULAR JOINT SYNDROME
  15. ADVIL [Concomitant]
     Active Substance: IBUPROFEN
     Indication: BURSITIS

REACTIONS (8)
  - Colon cancer [Not Recovered/Not Resolved]
  - Asthenia [Unknown]
  - Crohn^s disease [Unknown]
  - Injection site pain [Unknown]
  - Abdominal hernia [Not Recovered/Not Resolved]
  - Colitis ulcerative [Recovering/Resolving]
  - Depression [Unknown]
  - Treatment noncompliance [Unknown]

NARRATIVE: CASE EVENT DATE: 200406
